FAERS Safety Report 8277273-0 (Version None)
Quarter: 2012Q2

REPORT INFORMATION
  Report Type: 
  Country: None (occurrence: None)
  Receive Date: 20120412
  Receipt Date: 20120404
  Transmission Date: 20120825
  Serious: Yes (Hospitalization, Other)
  Sender: FDA-Public Use
  Company Number: US-VIIV HEALTHCARE LIMITED-A0965271A

PATIENT
  Age: 32 Year
  Sex: Female

DRUGS (3)
  1. NORVIR [Concomitant]
  2. REYATAZ [Concomitant]
  3. COMBIVIR [Suspect]
     Indication: PROPHYLAXIS
     Route: 048

REACTIONS (1)
  - GASTROINTESTINAL DISORDER [None]
